FAERS Safety Report 11538144 (Version 1)
Quarter: 2015Q3

REPORT INFORMATION
  Report Type: Spontaneous
  Country: JP (occurrence: JP)
  Receive Date: 20150922
  Receipt Date: 20150922
  Transmission Date: 20151125
  Serious: Yes (Hospitalization)
  Sender: FDA-Public Use
  Company Number: JP-009507513-1509JPN010434

PATIENT

DRUGS (1)
  1. NU-LOTAN [Suspect]
     Active Substance: LOSARTAN POTASSIUM
     Dosage: 25 MG, TID
     Route: 048

REACTIONS (2)
  - Adverse event [Unknown]
  - Inappropriate schedule of drug administration [Unknown]
